FAERS Safety Report 6385401-7 (Version None)
Quarter: 2009Q4

REPORT INFORMATION
  Report Type: 
  Country: None (occurrence: None)
  Receive Date: 20091002
  Receipt Date: 20080826
  Transmission Date: 20100525
  Serious: No
  Sender: FDA-Public Use
  Company Number: US-ASTRAZENECA-2008UW17534

PATIENT
  Age: 59 Year
  Sex: Female
  Weight: 68 kg

DRUGS (6)
  1. ARIMIDEX [Suspect]
     Indication: BREAST CANCER
     Route: 048
  2. LIPITOR [Concomitant]
  3. ZETIA [Concomitant]
  4. NIACIN [Concomitant]
  5. ACTONEL [Concomitant]
  6. LISINOPRIL [Concomitant]
     Route: 048

REACTIONS (1)
  - LIMB INJURY [None]
